FAERS Safety Report 16154413 (Version 1)
Quarter: 2019Q2

REPORT INFORMATION
  Report Type: Spontaneous
  Country: US (occurrence: US)
  Receive Date: 20190403
  Receipt Date: 20190403
  Transmission Date: 20190711
  Serious: No
  Sender: FDA-Public Use
  Company Number: US-TEVA-2019-US-1028872

PATIENT
  Sex: Male

DRUGS (4)
  1. TEVA CLONAZEPAM [Suspect]
     Active Substance: CLONAZEPAM
     Indication: AURA
  2. KEPPRA [Concomitant]
     Active Substance: LEVETIRACETAM
     Indication: SEIZURE
  3. TEVA CLONAZEPAM [Suspect]
     Active Substance: CLONAZEPAM
     Indication: SEIZURE
     Route: 065
     Dates: start: 2014
  4. TEVA CLONAZEPAM [Suspect]
     Active Substance: CLONAZEPAM
     Indication: PANIC ATTACK

REACTIONS (1)
  - Therapeutic product effect incomplete [Unknown]
